FAERS Safety Report 24531555 (Version 1)
Quarter: 2024Q4

REPORT INFORMATION
  Report Type: Report from Study
  Country: MX (occurrence: MX)
  Receive Date: 20241022
  Receipt Date: 20241022
  Transmission Date: 20250115
  Serious: No
  Sender: ROCHE
  Company Number: MX-ROCHE-3488910

PATIENT
  Age: 2 Year
  Sex: Female
  Weight: 39.4 kg

DRUGS (5)
  1. PULMOZYME [Suspect]
     Active Substance: DORNASE ALFA
     Indication: Cystic fibrosis
     Dosage: 1 AMPOULE
     Route: 055
     Dates: start: 20070927, end: 202307
  2. PULMOZYME [Suspect]
     Active Substance: DORNASE ALFA
     Dosage: 1 AMPOULE
     Route: 055
     Dates: start: 202307
  3. PANCREATIN [Concomitant]
     Active Substance: PANCRELIPASE
  4. ALBUTEROL\IPRATROPIUM [Concomitant]
     Active Substance: ALBUTEROL\IPRATROPIUM
     Dosage: DOSE AND FREQUENCY WERE NOT REPORTED
  5. ALBUTEROL [Concomitant]
     Active Substance: ALBUTEROL
     Indication: Cystic fibrosis
     Dosage: 1 AMPOULE
     Route: 055
     Dates: start: 2007

REACTIONS (3)
  - Off label use [Unknown]
  - Off label use [Unknown]
  - Drug ineffective [Recovering/Resolving]

NARRATIVE: CASE EVENT DATE: 20070927
